FAERS Safety Report 6192678-X (Version None)
Quarter: 2009Q2

REPORT INFORMATION
  Report Type: 
  Country: None (occurrence: None)
  Receive Date: 20090518
  Receipt Date: 20090506
  Transmission Date: 20091009
  Serious: Yes (Hospitalization)
  Sender: FDA-Public Use
  Company Number: FR-ROCHE-616948

PATIENT
  Sex: Female
  Weight: 83 kg

DRUGS (19)
  1. METHOXY POLYETHYLENE GLYCOL-EPOETIN BETA [Suspect]
     Dosage: FORM: PRE-FILLED SYRINGE
     Route: 042
     Dates: start: 20081208, end: 20090331
  2. CRESTOR [Concomitant]
     Dates: start: 20090121, end: 20090427
  3. CANDESARTAN CILEXETIL [Concomitant]
     Dates: start: 20081219
  4. PLAVIX [Concomitant]
     Dates: start: 20080630, end: 20090223
  5. PREVISCAN [Concomitant]
     Dates: start: 20090109, end: 20090223
  6. INSULIN [Concomitant]
  7. STABLON [Concomitant]
     Dates: start: 20080109
  8. ATENOLOL [Concomitant]
     Dates: start: 20090109
  9. DISCOTRINE [Concomitant]
     Dates: start: 20080109
  10. MOTILIUM [Concomitant]
     Dates: start: 20080109, end: 20090223
  11. NEXIUM [Concomitant]
     Dates: start: 20080109
  12. CALTRATE [Concomitant]
     Dates: start: 20080225
  13. FOSRENOL [Concomitant]
     Dates: start: 20080324, end: 20090223
  14. GAVISCON [Concomitant]
     Dates: start: 20080620, end: 20090223
  15. NOVORAPID [Concomitant]
     Dosage: DRUG: NOVORAPIDE
  16. ODRIK [Concomitant]
     Dates: start: 20081128, end: 20081219
  17. UVEDOSE [Concomitant]
     Dates: start: 20080112, end: 20090223
  18. LANTUS [Concomitant]
     Dates: start: 20090302
  19. CALCIPARINE [Concomitant]
     Dates: start: 20090303

REACTIONS (3)
  - HEAD INJURY [None]
  - SUBDURAL HAEMATOMA [None]
  - VASCULAR DEMENTIA [None]
